FAERS Safety Report 15770353 (Version 1)
Quarter: 2018Q4

REPORT INFORMATION
  Report Type: Spontaneous
  Country: US (occurrence: US)
  Receive Date: 20181227
  Receipt Date: 20181227
  Transmission Date: 20190205
  Serious: No
  Sender: FDA-Public Use
  Company Number: None

PATIENT
  Sex: Male

DRUGS (1)
  1. ILARIS [Suspect]
     Active Substance: CANAKINUMAB
     Indication: JUVENILE IDIOPATHIC ARTHRITIS
     Dosage: ?          OTHER FREQUENCY:QM;?
     Route: 058
     Dates: start: 20180809

REACTIONS (5)
  - Pyrexia [None]
  - Lip swelling [None]
  - Pneumonia [None]
  - Cyanosis [None]
  - Influenza [None]
